FAERS Safety Report 6130214-4 (Version None)
Quarter: 2009Q1

REPORT INFORMATION
  Report Type: 
  Country: None (occurrence: None)
  Receive Date: 20090324
  Receipt Date: 20090316
  Transmission Date: 20090719
  Serious: Yes (Hospitalization)
  Sender: FDA-Public Use
  Company Number: US-KINGPHARMUSA00001-K200900290

PATIENT
  Age: 66 Year
  Sex: Male

DRUGS (8)
  1. ALTACE [Suspect]
     Indication: CARDIAC FAILURE
     Dosage: 5 MG, QD
     Route: 048
     Dates: start: 20080517, end: 20080529
  2. RIFADIN [Suspect]
     Indication: ENDOCARDITIS
     Dosage: 1600 MG, QD
     Route: 048
     Dates: start: 20080515, end: 20080527
  3. VANCOMYCIN HCL [Suspect]
     Indication: ENDOCARDITIS
     Dosage: 2 G, QD
     Route: 042
     Dates: start: 20080502, end: 20080529
  4. CARDENSIEL [Suspect]
     Indication: CARDIAC FAILURE
     Dosage: 1.25 MG, QD
     Route: 048
     Dates: start: 20080506, end: 20080529
  5. TAHOR [Suspect]
     Indication: HYPERCHOLESTEROLAEMIA
     Dosage: 10 MG, QD
     Route: 048
     Dates: end: 20080529
  6. ATARAX [Suspect]
     Indication: ANXIETY
     Dosage: 25 MG, QD
     Route: 048
     Dates: start: 20080310, end: 20080529
  7. LEXOMIL [Suspect]
     Indication: ANXIETY
     Dosage: 3 MG, QD
     Route: 048
     Dates: start: 20080517, end: 20080529
  8. INIPOMP                            /01263201/ [Suspect]
     Indication: PROPHYLAXIS
     Dosage: 1 U, QD
     Route: 048
     Dates: start: 20080515, end: 20080529

REACTIONS (7)
  - DRUG RASH WITH EOSINOPHILIA AND SYSTEMIC SYMPTOMS [None]
  - EPIDERMAL NECROSIS [None]
  - INFLAMMATION [None]
  - PYREXIA [None]
  - RASH [None]
  - RASH MACULAR [None]
  - TOXIC SKIN ERUPTION [None]
